FAERS Safety Report 23844338 (Version 1)
Quarter: 2024Q2

REPORT INFORMATION
  Report Type: Spontaneous
  Country: CA (occurrence: CA)
  Receive Date: 20240510
  Receipt Date: 20240510
  Transmission Date: 20240716
  Serious: Yes (Hospitalization, Other)
  Sender: FDA-Public Use
  Company Number: CA-TEVA-VS-3197064

PATIENT
  Age: 10 Year
  Sex: Male
  Weight: 36 kg

DRUGS (6)
  1. LANSOPRAZOLE [Suspect]
     Active Substance: LANSOPRAZOLE
     Indication: Antiallergic therapy
     Dosage: DOSE FORM: DELAYED-RELEASE CAPSULES
     Route: 048
  2. LANSOPRAZOLE [Suspect]
     Active Substance: LANSOPRAZOLE
     Indication: Antiallergic therapy
     Dosage: DOSE FORM: DELAYED-RELEASE CAPSULES
     Route: 048
  3. LANSOPRAZOLE [Suspect]
     Active Substance: LANSOPRAZOLE
     Indication: Antiallergic therapy
     Route: 048
  4. LANSOPRAZOLE [Suspect]
     Active Substance: LANSOPRAZOLE
     Indication: Antiallergic therapy
     Route: 065
  5. CICLESONIDE [Concomitant]
     Active Substance: CICLESONIDE
     Route: 048
  6. CICLESONIDE [Concomitant]
     Active Substance: CICLESONIDE
     Route: 065

REACTIONS (4)
  - Eosinophilic oesophagitis [Recovering/Resolving]
  - Gastritis [Recovering/Resolving]
  - Polyp [Recovering/Resolving]
  - Endoscopy upper gastrointestinal tract [Recovering/Resolving]
